FAERS Safety Report 21307496 (Version 1)
Quarter: 2022Q3

REPORT INFORMATION
  Report Type: Spontaneous
  Country: IT (occurrence: IT)
  Receive Date: 20220908
  Receipt Date: 20220908
  Transmission Date: 20221027
  Serious: Yes (Other)
  Sender: FDA-Public Use
  Company Number: None

PATIENT
  Age: 41 Year
  Sex: Female

DRUGS (2)
  1. DABRAFENIB [Suspect]
     Active Substance: DABRAFENIB
     Indication: Malignant melanoma
     Dosage: 4 DOSAGE FORM, Q24H (2+2 CP DIE CONTINUATIVAMENTE)
     Route: 048
     Dates: start: 20220301, end: 20220815
  2. TRAMETINIB [Suspect]
     Active Substance: TRAMETINIB
     Indication: Malignant melanoma
     Dosage: 1 DOSAGE FORM, Q24H (1 CP DIE CONTINUATIVAMENTE)
     Route: 048
     Dates: start: 20220301

REACTIONS (1)
  - Colitis erosive [Recovered/Resolved]

NARRATIVE: CASE EVENT DATE: 20220816
